FAERS Safety Report 6661202-7 (Version None)
Quarter: 2010Q1

REPORT INFORMATION
  Report Type: 
  Country: None (occurrence: None)
  Receive Date: 20100331
  Receipt Date: 20100325
  Transmission Date: 20100710
  Serious: Yes (Other)
  Sender: FDA-Public Use
  Company Number: D0067033A

PATIENT
  Age: 31 Year
  Sex: Female
  Weight: 65 kg

DRUGS (3)
  1. FRAXIPARIN [Suspect]
     Indication: THROMBOSIS PROPHYLAXIS
     Dosage: .6ML PER DAY
     Route: 065
     Dates: start: 20090701, end: 20090708
  2. ARIXTRA [Suspect]
     Dosage: 2.5MG PER DAY
     Route: 065
     Dates: start: 20090708, end: 20100126
  3. FRAGMIN [Suspect]
     Route: 065
     Dates: start: 20090509, end: 20090701

REACTIONS (3)
  - DRUG HYPERSENSITIVITY [None]
  - GENERALISED ERYTHEMA [None]
  - PREMATURE BABY [None]
